FAERS Safety Report 10470555 (Version 1)
Quarter: 2014Q3

REPORT INFORMATION
  Report Type: Spontaneous
  Country: US (occurrence: US)
  Receive Date: 20140923
  Receipt Date: 20140923
  Transmission Date: 20150326
  Serious: Yes (Death, Hospitalization, Other)
  Sender: FDA-Public Use
  Company Number: US-GILEAD-2014-0115709

PATIENT
  Age: 66 Year
  Sex: Female

DRUGS (1)
  1. LETAIRIS [Suspect]
     Active Substance: AMBRISENTAN
     Indication: PRODUCT USED FOR UNKNOWN INDICATION
     Dosage: 5 MG, UNK
     Route: 065
     Dates: start: 20140530

REACTIONS (5)
  - Death [Fatal]
  - Gout [Unknown]
  - Renal failure [Unknown]
  - Hypercalcaemia [Unknown]
  - Mental status changes [Unknown]

NARRATIVE: CASE EVENT DATE: 20140910
